FAERS Safety Report 6208523-X (Version None)
Quarter: 2009Q2

REPORT INFORMATION
  Report Type: 
  Country: None (occurrence: None)
  Receive Date: 20090529
  Receipt Date: 20090128
  Transmission Date: 20091009
  Serious: Yes (Life-Threatening)
  Sender: FDA-Public Use
  Company Number: CA-ASTRAZENECA-2009UW02571

PATIENT
  Age: 56 Year
  Sex: Female
  Weight: 70 kg

DRUGS (9)
  1. XYLOCAINE ENDOTRACHEAL [Suspect]
     Route: 048
  2. HURRICAINE TOPICAL ANESTHETIC SPRAY [Suspect]
     Dosage: AEROSOL WITH PROPELLANTS
     Route: 061
  3. ATROVENT [Concomitant]
  4. BECLOFORTE INHALER [Concomitant]
     Dosage: METERED DOSE - 250 UG/AEM
  5. DIAZEPAM [Concomitant]
  6. FUROSEMIDE [Concomitant]
  7. INSULIN [Concomitant]
     Route: 042
  8. ALBUTEROL [Concomitant]
  9. TYLENOL W/ CODEINE [Concomitant]

REACTIONS (4)
  - HYPOTENSION [None]
  - LACTIC ACIDOSIS [None]
  - METHAEMOGLOBINAEMIA [None]
  - PULMONARY OEDEMA [None]
